FAERS Safety Report 6047921-4 (Version None)
Quarter: 2009Q1

REPORT INFORMATION
  Report Type: 
  Country: None (occurrence: None)
  Receive Date: 20090123
  Receipt Date: 20090115
  Transmission Date: 20090719
  Serious: Yes (Hospitalization)
  Sender: FDA-Public Use
  Company Number: FR-SP-2009-00146

PATIENT
  Age: 66 Year
  Sex: Male

DRUGS (13)
  1. IMMUCYST [Suspect]
     Indication: BLADDER CANCER
     Route: 043
     Dates: end: 20081210
  2. IMMUCYST [Suspect]
     Route: 043
     Dates: end: 20081210
  3. IRBESARTAN [Concomitant]
  4. FUROSEMIDE [Concomitant]
  5. ADANCOR (NICORANDIL) [Concomitant]
  6. BUFLOMEDIL [Concomitant]
  7. INEGY (EZETIMIBE/SIMVASTATIN) [Concomitant]
  8. SOTALOL HCL [Concomitant]
  9. GLIMEPIRIDE [Concomitant]
  10. PLAVIX [Concomitant]
  11. FINASTERIDE [Concomitant]
  12. LANSOPRAZOLE [Concomitant]
  13. ACTOS [Concomitant]

REACTIONS (4)
  - DYSURIA [None]
  - PURULENT DISCHARGE [None]
  - TESTICULAR PAIN [None]
  - URETHRAL PAIN [None]
